FAERS Safety Report 6892727-7 (Version None)
Quarter: 2010Q3

REPORT INFORMATION
  Report Type: 
  Country: None (occurrence: None)
  Receive Date: 20100731
  Receipt Date: 20080826
  Transmission Date: 20110219
  Serious: No
  Sender: FDA-Public Use
  Company Number: US-PFIZER INC-2008058525

PATIENT
  Sex: Female
  Weight: 88.45 kg

DRUGS (3)
  1. AMLODIPINE [Suspect]
     Indication: HYPERTENSION
     Route: 048
     Dates: start: 20080702, end: 20080714
  2. ALL OTHER THERAPEUTIC PRODUCTS [Concomitant]
  3. DELACORT [Concomitant]

REACTIONS (3)
  - DIZZINESS [None]
  - FATIGUE [None]
  - OEDEMA PERIPHERAL [None]
